FAERS Safety Report 7946817-8 (Version None)
Quarter: 2011Q4

REPORT INFORMATION
  Report Type: 
  Country: None (occurrence: None)
  Receive Date: 20111125
  Receipt Date: 20111109
  Transmission Date: 20120403
  Serious: Yes (Hospitalization, Other)
  Sender: FDA-Public Use
  Company Number: CRC-11-288

PATIENT
  Age: 53 Year
  Sex: Female

DRUGS (5)
  1. METHOTREXATE [Suspect]
     Indication: T-CELL LYMPHOMA
     Dosage: 5,040 MG OVER 24 H IV
     Route: 042
  2. FLUOXETINE [Concomitant]
  3. PANTOPRAZOLE SODIUM [Suspect]
     Indication: PROPHYLAXIS
     Dosage: 1 TABLET DAILY; ORAL
     Route: 048
  4. INTRAVENOUS HYDRATION [Concomitant]
  5. VALACICLOVIR [Concomitant]

REACTIONS (2)
  - DRUG LEVEL INCREASED [None]
  - BLOOD CREATININE INCREASED [None]
